FAERS Safety Report 4565631-7 (Version None)
Quarter: 2005Q1

REPORT INFORMATION
  Report Type: 
  Country: None (occurrence: None)
  Receive Date: 20050125
  Receipt Date: 20050125
  Transmission Date: 20050727
  Serious: Yes (Life-Threatening, Hospitalization)
  Sender: FDA-Public Use
  Company Number: None

PATIENT
  Age: 71 Year
  Sex: Female
  Weight: 49.8957 kg

DRUGS (12)
  1. CRESTOR [Suspect]
     Indication: HYPERLIPIDAEMIA
     Dosage: 1 QHS
     Dates: start: 20040530, end: 20041205
  2. ZETIA [Concomitant]
  3. PLAVIX [Concomitant]
  4. PLETAL [Concomitant]
  5. ALTACE [Concomitant]
  6. OSCAL D [Concomitant]
  7. ECOTRIN [Concomitant]
  8. ATIVAN [Concomitant]
  9. TYLENOL [Concomitant]
  10. ATENOLOL [Concomitant]
  11. PROTONIX [Concomitant]
  12. MIACALCIN [Concomitant]

REACTIONS (2)
  - RENAL FAILURE ACUTE [None]
  - RHABDOMYOLYSIS [None]
